FAERS Safety Report 8237820-1 (Version None)
Quarter: 2012Q1

REPORT INFORMATION
  Report Type: 
  Country: None (occurrence: None)
  Receive Date: 20120326
  Receipt Date: 20120315
  Transmission Date: 20120608
  Serious: Yes (Other)
  Sender: FDA-Public Use
  Company Number: 12-211

PATIENT
  Age: 59 Year
  Sex: Female

DRUGS (4)
  1. ANTIHYPERTENSIVES [Concomitant]
  2. VITAMIN D [Concomitant]
  3. NAPROXEN SODIUM [Suspect]
     Indication: ANALGESIC THERAPY
     Dosage: 1DF / PRN / ORAL
     Route: 048
     Dates: start: 20120201
  4. MIDOL EXTENDED RELIEF CAPLETS [Suspect]
     Indication: ANALGESIC THERAPY
     Dosage: ORAL
     Route: 048
     Dates: start: 20020101

REACTIONS (3)
  - DYSPNOEA [None]
  - SOMNOLENCE [None]
  - MENTAL IMPAIRMENT [None]
